FAERS Safety Report 9410002 (Version 1)
Quarter: 2013Q3

REPORT INFORMATION
  Report Type: Spontaneous
  Country: JP (occurrence: JP)
  Receive Date: 20130719
  Receipt Date: 20130719
  Transmission Date: 20140515
  Serious: Yes (Hospitalization)
  Sender: FDA-Public Use
  Company Number: JP-SANOFI-AVENTIS-2013SA071106

PATIENT
  Age: 83 Year
  Sex: Female

DRUGS (4)
  1. LASIX [Suspect]
     Indication: OEDEMA PERIPHERAL
     Dosage: 1 TABLET (STRENGTH: 40 MG) TAKEN IN 1 DIVIDED DOSE
     Route: 048
  2. HERBAL PREPARATION [Suspect]
     Indication: PRODUCT USED FOR UNKNOWN INDICATION
     Dosage: IN 1 DIVIDED DOSE
     Route: 048
  3. BENET [Concomitant]
     Dosage: 1 TAB OF STRENGTH: 17.5 UNSPECIFIED UNITS TAKEN PER WEEK
  4. METHYCOBAL [Concomitant]
     Dosage: 3 TAB OF STRENGTH: 500 UNSPECIFIED UNITS TAKEN IN 3 DIVIDED DOSES

REACTIONS (9)
  - Hypokalaemia [Recovered/Resolved]
  - Hypoaesthesia [Recovered/Resolved]
  - Myotonia [Recovered/Resolved]
  - Muscular weakness [Recovered/Resolved]
  - Electrocardiogram QT prolonged [Recovering/Resolving]
  - Torsade de pointes [Recovered/Resolved]
  - Ventricular fibrillation [Recovered/Resolved]
  - Grand mal convulsion [Unknown]
  - Altered state of consciousness [Unknown]
